FAERS Safety Report 7592143-9 (Version None)
Quarter: 2011Q3

REPORT INFORMATION
  Report Type: 
  Country: None (occurrence: None)
  Receive Date: 20110706
  Receipt Date: 20110630
  Transmission Date: 20111222
  Serious: Yes (Hospitalization)
  Sender: FDA-Public Use
  Company Number: FR-B.I. PHARMACEUTICALS,INC./RIDGEFIELD-2011-FF-00641FF

PATIENT
  Age: 75 Year
  Sex: Female

DRUGS (8)
  1. SPIRIVA [Suspect]
     Route: 055
     Dates: start: 20100902
  2. BONIVA [Suspect]
     Dates: start: 20080101, end: 20100701
  3. SPIRIVA [Suspect]
     Route: 055
     Dates: start: 20070101, end: 20100701
  4. ACTONEL [Suspect]
     Dates: start: 20100701, end: 20100901
  5. PREDNISONE [Concomitant]
     Dates: end: 20100901
  6. SERETIDE [Concomitant]
     Route: 055
  7. VENTOLIN [Concomitant]
  8. CACIT D3 [Concomitant]

REACTIONS (2)
  - UVEITIS [None]
  - OPTIC ISCHAEMIC NEUROPATHY [None]
